FAERS Safety Report 8402818-7 (Version None)
Quarter: 2012Q2

REPORT INFORMATION
  Report Type: 
  Country: None (occurrence: None)
  Receive Date: 20120601
  Receipt Date: 20120530
  Transmission Date: 20120825
  Serious: Yes (Other)
  Sender: FDA-Public Use
  Company Number: FR-BAYER-2012-053581

PATIENT
  Age: 30 Year
  Sex: Female

DRUGS (1)
  1. JASMINE [Suspect]
     Indication: ORAL CONTRACEPTION
     Dosage: 1 DF, UNK
     Route: 048
     Dates: start: 20111201

REACTIONS (2)
  - PREGNANCY ON ORAL CONTRACEPTIVE [None]
  - ABORTION INDUCED [None]
